FAERS Safety Report 24357838 (Version 2)
Quarter: 2024Q3

REPORT INFORMATION
  Report Type: Spontaneous
  Country: US (occurrence: US)
  Receive Date: 20240924
  Receipt Date: 20240926
  Transmission Date: 20241017
  Serious: No
  Sender: ABBVIE
  Company Number: US-ABBVIE-5935531

PATIENT

DRUGS (3)
  1. BOTOX [Suspect]
     Active Substance: ONABOTULINUMTOXINA
     Indication: Migraine
     Dosage: TIME INTERVAL: AS NECESSARY
     Route: 030
  2. BOTOX [Suspect]
     Active Substance: ONABOTULINUMTOXINA
     Indication: Migraine
     Dosage: TIME INTERVAL: AS NECESSARY: POSTERIOR PART OF HEAD AND NECK
     Route: 065
     Dates: start: 20240916, end: 20240916
  3. BOTOX [Suspect]
     Active Substance: ONABOTULINUMTOXINA
     Indication: Migraine
     Dosage: TIME INTERVAL: AS NECESSARY: POSTERIOR PART OF HEAD AND NECK
     Route: 065
     Dates: start: 20240917, end: 20240917

REACTIONS (2)
  - Skin burning sensation [Unknown]
  - Facial pain [Unknown]

NARRATIVE: CASE EVENT DATE: 20240901
